FAERS Safety Report 18847049 (Version 1)
Quarter: 2021Q1

REPORT INFORMATION
  Report Type: Report from Study
  Country: US (occurrence: US)
  Receive Date: 20210203
  Receipt Date: 20210203
  Transmission Date: 20210419
  Serious: No
  Sender: FDA-Public Use
  Company Number: US-EXELIXIS-CABO-20034337

PATIENT
  Age: 74 Year
  Sex: Male

DRUGS (2)
  1. CABOMETYX [Suspect]
     Active Substance: CABOZANTINIB S-MALATE
     Dosage: 60 MG, QD
     Dates: start: 20201118
  2. CABOMETYX [Suspect]
     Active Substance: CABOZANTINIB S-MALATE
     Indication: RENAL CELL CARCINOMA
     Dosage: 60 MG, QD
     Dates: start: 202007, end: 20201107

REACTIONS (10)
  - Asthenia [Unknown]
  - Decreased appetite [Recovering/Resolving]
  - Weight decreased [Unknown]
  - Diarrhoea [Recovering/Resolving]
  - Taste disorder [Unknown]
  - Fatigue [Unknown]
  - Somnolence [Unknown]
  - Dehydration [Recovered/Resolved]
  - Lactose intolerance [Unknown]
  - Dysphonia [Unknown]

NARRATIVE: CASE EVENT DATE: 202007
